FAERS Safety Report 21656112 (Version 1)
Quarter: 2022Q4

REPORT INFORMATION
  Report Type: Other
  Country: US (occurrence: None)
  Receive Date: 20221129
  Receipt Date: 20221129
  Transmission Date: 20230112
  Serious: Yes (Other)
  Sender: FDA-Public Use
  Company Number: US-ROCHE-3223336

PATIENT
  Age: 35 Year
  Sex: Female

DRUGS (3)
  1. OCREVUS [Suspect]
     Active Substance: OCRELIZUMAB
     Indication: Relapsing-remitting multiple sclerosis
     Route: 065
  2. CYMBALTA [Concomitant]
     Active Substance: DULOXETINE HYDROCHLORIDE
  3. LITHIUM [Concomitant]
     Active Substance: LITHIUM

REACTIONS (5)
  - Urinary tract infection [Unknown]
  - Feeling abnormal [Unknown]
  - Infection [Unknown]
  - Confusional state [Unknown]
  - Aphasia [Unknown]
